FAERS Safety Report 8815155 (Version 1)
Quarter: 2012Q4

REPORT INFORMATION
  Report Type: 
  Country: US (occurrence: US)
  Receive Date: 20120928
  Receipt Date: 20120928
  Transmission Date: 20130627
  Serious: Yes (Hospitalization)
  Sender: FDA-Public Use
  Company Number: US-BAYER-2012-100526

PATIENT
  Age: 29 Year
  Sex: Female
  Weight: 82.99 kg

DRUGS (12)
  1. YAZ [Suspect]
  2. YASMIN [Suspect]
  3. GIANVI [Suspect]
  4. OCELLA [Suspect]
  5. VIIBRYD [Concomitant]
     Indication: ANXIETY
     Dosage: 40 mg, daily
     Route: 048
  6. VIIBRYD [Concomitant]
     Indication: DEPRESSION
  7. BUPROPION HYDROCHLORIDE [Concomitant]
     Dosage: 300 mg, UNK
  8. PROTONIX [Concomitant]
     Indication: GASTROOESOPHAGEAL REFLUX DISEASE
     Dosage: 40 mg, daily
     Route: 048
  9. NAPROSYN [Concomitant]
  10. MORPHINE [Concomitant]
     Indication: PAIN MANAGEMENT
  11. PERCOCET [Concomitant]
     Indication: PAIN MANAGEMENT
  12. TORADOL [Concomitant]
     Indication: PAIN MANAGEMENT

REACTIONS (1)
  - Pulmonary embolism [None]
